FAERS Safety Report 5558225-8 (Version None)
Quarter: 2007Q4

REPORT INFORMATION
  Report Type: 
  Country: None (occurrence: None)
  Receive Date: 20071214
  Receipt Date: 20071203
  Transmission Date: 20080405
  Serious: Yes (Hospitalization, Other)
  Sender: FDA-Public Use
  Company Number: DE-PFIZER INC-2007102493

PATIENT
  Age: 80 Year
  Sex: Female

DRUGS (1)
  1. PREGABALIN [Suspect]
     Indication: POST HERPETIC NEURALGIA
     Dosage: DAILY DOSE:150MG

REACTIONS (2)
  - ENCEPHALOPATHY [None]
  - MYOCLONIC EPILEPSY [None]
